FAERS Safety Report 4861896-2 (Version None)
Quarter: 2005Q4

REPORT INFORMATION
  Report Type: 
  Country: None (occurrence: None)
  Receive Date: 20051130
  Receipt Date: 20050815
  Transmission Date: 20060501
  Serious: No
  Sender: FDA-Public Use
  Company Number: FABR-11200

PATIENT
  Age: 23 Year
  Sex: Male
  Weight: 59.2 kg

DRUGS (4)
  1. FABRAZYME [Suspect]
     Indication: FABRY'S DISEASE
     Dosage: 60 MG Q2WKS IV
     Route: 042
     Dates: start: 20050216
  2. FABRAZYME [Suspect]
     Indication: FABRY'S DISEASE
     Route: 065
     Dates: start: 20030829, end: 20040501
  3. DIPHENHYDRAMINE [Concomitant]
  4. TEGRETOL [Concomitant]

REACTIONS (1)
  - URTICARIA [None]
